FAERS Safety Report 10793041 (Version 1)
Quarter: 2015Q1

REPORT INFORMATION
  Report Type: Spontaneous
  Country: FR (occurrence: FR)
  Receive Date: 20150213
  Receipt Date: 20150213
  Transmission Date: 20150721
  Serious: Yes (Other)
  Sender: FDA-Public Use
  Company Number: FR-FRI-1000074336

PATIENT
  Sex: Female

DRUGS (1)
  1. MILNACIPRAN [Suspect]
     Active Substance: MILNACIPRAN
     Indication: FIBROMYALGIA

REACTIONS (8)
  - Type 2 diabetes mellitus [Not Recovered/Not Resolved]
  - Intentional product misuse [Recovered/Resolved]
  - Drug interaction [Not Recovered/Not Resolved]
  - Off label use [Not Recovered/Not Resolved]
  - Nausea [Not Recovered/Not Resolved]
  - Vomiting [Not Recovered/Not Resolved]
  - Abdominal pain [Not Recovered/Not Resolved]
  - Hyperchlorhydria [Not Recovered/Not Resolved]
